FAERS Safety Report 14861253 (Version 1)
Quarter: 2018Q2

REPORT INFORMATION
  Report Type: Spontaneous
  Country: US (occurrence: US)
  Receive Date: 20180508
  Receipt Date: 20180508
  Transmission Date: 20180711
  Serious: No
  Sender: FDA-Public Use
  Company Number: US-SHIONOGI, INC-2017000994

PATIENT
  Sex: Female

DRUGS (2)
  1. PONSTEL [Suspect]
     Active Substance: MEFENAMIC ACID
     Indication: ENDOMETRIOSIS
     Dosage: UNK
     Route: 065
  2. PONSTEL [Suspect]
     Active Substance: MEFENAMIC ACID
     Indication: LYME DISEASE

REACTIONS (3)
  - Pain [Not Recovered/Not Resolved]
  - Product use in unapproved indication [Unknown]
  - Inappropriate schedule of drug administration [Unknown]
